FAERS Safety Report 8104864 (Version 2)
Quarter: 2013Q1

REPORT INFORMATION
  Report Type: Spontaneous
  Country: TW (occurrence: TW)
  Receive Date: 20110824
  Receipt Date: 20130301
  Transmission Date: 20140127
  Serious: Yes (Hospitalization)
  Sender: FDA-Public Use
  Company Number: PHHY2011TW75013

PATIENT
  Age: 46 Year
  Sex: Female

DRUGS (1)
  1. ZOLPIDEM [Suspect]
     Indication: ANXIETY DISORDER
     Dosage: 400 MG, IN DIVIDED DOSES
     Route: 048

REACTIONS (11)
  - Psychotic disorder [Recovering/Resolving]
  - Dysarthria [Recovering/Resolving]
  - Hallucination, visual [Recovering/Resolving]
  - Dyskinesia [Recovering/Resolving]
  - Muscle twitching [Recovering/Resolving]
  - Sinus tachycardia [Recovering/Resolving]
  - Delirium [Recovering/Resolving]
  - Grand mal convulsion [Recovering/Resolving]
  - Convulsion [Recovered/Resolved]
  - Drug dependence [Recovering/Resolving]
  - Drug withdrawal syndrome [Recovering/Resolving]
